FAERS Safety Report 19392273 (Version 3)
Quarter: 2022Q1

REPORT INFORMATION
  Report Type: Spontaneous
  Country: US (occurrence: US)
  Receive Date: 20210608
  Receipt Date: 20220311
  Transmission Date: 20220423
  Serious: Yes (Other)
  Sender: FDA-Public Use
  Company Number: US-GILEAD-2021-0534892

PATIENT
  Age: 55 Year
  Sex: Male
  Weight: 108.84 kg

DRUGS (75)
  1. ATRIPLA [Suspect]
     Active Substance: EFAVIRENZ\EMTRICITABINE\TENOFOVIR DISOPROXIL FUMARATE
     Indication: HIV infection
     Dosage: UNK
     Route: 048
     Dates: start: 2005
  2. ATRIPLA [Suspect]
     Active Substance: EFAVIRENZ\EMTRICITABINE\TENOFOVIR DISOPROXIL FUMARATE
     Dosage: UNK
     Route: 048
     Dates: start: 2008, end: 201512
  3. TRUVADA [Suspect]
     Active Substance: EMTRICITABINE\TENOFOVIR DISOPROXIL FUMARATE
     Indication: HIV infection
     Dosage: UNK
     Route: 048
     Dates: start: 2005
  4. TRUVADA [Suspect]
     Active Substance: EMTRICITABINE\TENOFOVIR DISOPROXIL FUMARATE
     Dosage: UNK
     Route: 048
     Dates: start: 201609, end: 201709
  5. DESCOVY [Concomitant]
     Active Substance: EMTRICITABINE\TENOFOVIR ALAFENAMIDE FUMARATE
  6. GENVOYA [Concomitant]
     Active Substance: COBICISTAT\ELVITEGRAVIR\EMTRICITABINE\TENOFOVIR ALAFENAMIDE FUMARATE
  7. COMBIVIR [Concomitant]
     Active Substance: LAMIVUDINE\ZIDOVUDINE
  8. CRIXIVAN [Concomitant]
     Active Substance: INDINAVIR SULFATE
  9. NORVIR [Concomitant]
     Active Substance: RITONAVIR
  10. PREZISTA [Concomitant]
     Active Substance: DARUNAVIR ETHANOLATE
  11. RETROVIR [Concomitant]
     Active Substance: ZIDOVUDINE
  12. SUSTIVA [Concomitant]
     Active Substance: EFAVIRENZ
  13. TIVICAY [Concomitant]
     Active Substance: DOLUTEGRAVIR SODIUM
  14. VIRACEPT [Concomitant]
     Active Substance: NELFINAVIR MESYLATE
  15. CEFADROXIL [Concomitant]
     Active Substance: CEFADROXIL
  16. OXYCODONE [Concomitant]
     Active Substance: OXYCODONE
  17. SILVER SULFADIAZINE [Concomitant]
     Active Substance: SILVER SULFADIAZINE
  18. CEPHALEXIN [Concomitant]
     Active Substance: CEPHALEXIN
  19. ONDANSETRON [Concomitant]
     Active Substance: ONDANSETRON
  20. TRIAMCINOLONE [Concomitant]
     Active Substance: TRIAMCINOLONE
  21. KETOCONAZOLE [Concomitant]
     Active Substance: KETOCONAZOLE
  22. OMEPRAZOLE [Concomitant]
     Active Substance: OMEPRAZOLE
  23. GABAPENTIN [Concomitant]
     Active Substance: GABAPENTIN
  24. PROMETHAZINE [Concomitant]
     Active Substance: PROMETHAZINE HYDROCHLORIDE
  25. HYDROCODONE [Concomitant]
     Active Substance: HYDROCODONE
  26. VITAMIN D NOS [Concomitant]
     Active Substance: VITAMIN D NOS
  27. RANITIDINE [Concomitant]
     Active Substance: RANITIDINE
  28. MUPIROCIN [Concomitant]
     Active Substance: MUPIROCIN
  29. FENOFIBRATE [Concomitant]
     Active Substance: FENOFIBRATE
  30. CYCLOBENZAPRINE [Concomitant]
     Active Substance: CYCLOBENZAPRINE
  31. ATENOLOL [Concomitant]
     Active Substance: ATENOLOL
  32. LISINOPRIL [Concomitant]
     Active Substance: LISINOPRIL
  33. HYDROCHLOROTHIAZIDE [Concomitant]
     Active Substance: HYDROCHLOROTHIAZIDE
  34. METFORMIN [Concomitant]
     Active Substance: METFORMIN HYDROCHLORIDE
  35. COLESTIPOL [Concomitant]
     Active Substance: COLESTIPOL
  36. CITALOPRAM [Concomitant]
     Active Substance: CITALOPRAM HYDROBROMIDE
  37. NASONEX [Concomitant]
     Active Substance: MOMETASONE FUROATE
  38. AMOXICILLIN [Concomitant]
     Active Substance: AMOXICILLIN
  39. GLIPIZIDE [Concomitant]
     Active Substance: GLIPIZIDE
  40. FERROUS SULFATE [Concomitant]
     Active Substance: FERROUS SULFATE
  41. IBUPROFEN [Concomitant]
     Active Substance: IBUPROFEN
  42. LAMIVUDINE [Concomitant]
     Active Substance: LAMIVUDINE
  43. METOPROLOL [Concomitant]
     Active Substance: METOPROLOL
  44. CARVEDILOL [Concomitant]
     Active Substance: CARVEDILOL
  45. CLINDAMYCIN [Concomitant]
     Active Substance: CLINDAMYCIN
  46. LANTUS [Concomitant]
     Active Substance: INSULIN GLARGINE
  47. DULOXETINE [Concomitant]
     Active Substance: DULOXETINE
  48. QUETIAPINE [Concomitant]
     Active Substance: QUETIAPINE
  49. AMLODIPINE [Concomitant]
     Active Substance: AMLODIPINE BESYLATE
  50. CIPROFLOXACIN [Concomitant]
     Active Substance: CIPROFLOXACIN
  51. MIRTAZAPINE [Concomitant]
     Active Substance: MIRTAZAPINE
  52. NARCAN [Concomitant]
     Active Substance: NALOXONE HYDROCHLORIDE
  53. FLUCONAZOLE [Concomitant]
     Active Substance: FLUCONAZOLE
  54. VICTOZA [Concomitant]
     Active Substance: LIRAGLUTIDE
  55. TRULICITY [Concomitant]
     Active Substance: DULAGLUTIDE
  56. LIVALO [Concomitant]
     Active Substance: PITAVASTATIN CALCIUM
  57. HUMALOG [Concomitant]
     Active Substance: INSULIN LISPRO
  58. TAMSULOSIN [Concomitant]
     Active Substance: TAMSULOSIN
  59. TRESIBA [Concomitant]
     Active Substance: INSULIN DEGLUDEC
  60. LABETALOL [Concomitant]
     Active Substance: LABETALOL\LABETALOL HYDROCHLORIDE
  61. SULFAMYLON [Concomitant]
     Active Substance: MAFENIDE ACETATE
  62. NOVOLOG [Concomitant]
     Active Substance: INSULIN ASPART
  63. TRESIBA [Concomitant]
     Active Substance: INSULIN DEGLUDEC
  64. PRAZOSIN [Concomitant]
     Active Substance: PRAZOSIN
  65. BRIMONIDINE [Concomitant]
     Active Substance: BRIMONIDINE TARTRATE
  66. TRAZODONE [Concomitant]
     Active Substance: TRAZODONE HYDROCHLORIDE
  67. CELEBREX [Concomitant]
     Active Substance: CELECOXIB
  68. PROCHLORPERAZINE [Concomitant]
     Active Substance: PROCHLORPERAZINE
  69. PAROXETINE [Concomitant]
     Active Substance: PAROXETINE
  70. AZITHROMYCIN [Concomitant]
     Active Substance: AZITHROMYCIN
  71. SIMVASTATIN [Concomitant]
     Active Substance: SIMVASTATIN
  72. LORAZEPAM [Concomitant]
     Active Substance: LORAZEPAM
  73. ANUSOL A [Concomitant]
  74. HYDROMORPHONE [Concomitant]
     Active Substance: HYDROMORPHONE
  75. CYMBALTA [Concomitant]
     Active Substance: DULOXETINE HYDROCHLORIDE

REACTIONS (12)
  - Chronic kidney disease [Not Recovered/Not Resolved]
  - Acute kidney injury [Not Recovered/Not Resolved]
  - Bone density decreased [Unknown]
  - Pain [Not Recovered/Not Resolved]
  - Emotional distress [Not Recovered/Not Resolved]
  - Anxiety [Not Recovered/Not Resolved]
  - Anhedonia [Not Recovered/Not Resolved]
  - Anaemia [Not Recovered/Not Resolved]
  - Nightmare [Unknown]
  - Gait disturbance [Not Recovered/Not Resolved]
  - Fatigue [Not Recovered/Not Resolved]
  - Depression [Not Recovered/Not Resolved]

NARRATIVE: CASE EVENT DATE: 20111201
